FAERS Safety Report 20092447 (Version 1)
Quarter: 2021Q4

REPORT INFORMATION
  Report Type: Spontaneous
  Country: US (occurrence: US)
  Receive Date: 20211119
  Receipt Date: 20211119
  Transmission Date: 20220303
  Serious: Yes (Hospitalization, Other)
  Sender: FDA-Public Use
  Company Number: US-INSUD PHARMA-2111US02752

PATIENT

DRUGS (5)
  1. TESTOSTERONE [Suspect]
     Active Substance: TESTOSTERONE
     Indication: Muscle building therapy
     Dosage: UNK
     Route: 030
  2. DIANABOL [Suspect]
     Active Substance: METHANDROSTENOLONE
     Indication: Muscle building therapy
     Dosage: UNK
     Route: 030
  3. UNSPECIFIED INGREDIENT [Suspect]
     Active Substance: UNSPECIFIED INGREDIENT
     Indication: Anxiety
     Route: 065
  4. BENZODIAZEPINE [Suspect]
     Active Substance: BENZODIAZEPINE
     Indication: Anxiety
     Route: 065
  5. UNSPECIFIED INGREDIENT [Suspect]
     Active Substance: UNSPECIFIED INGREDIENT
     Indication: Infection prophylaxis
     Dosage: APPLICATION INSIDE AND OUTSIDE OF TENT, ABOUT ONCE A MONTH
     Route: 065

REACTIONS (13)
  - Toxic leukoencephalopathy [Recovering/Resolving]
  - Encephalopathy [Recovering/Resolving]
  - Cognitive disorder [Recovering/Resolving]
  - Abnormal behaviour [Recovering/Resolving]
  - Neuropsychiatric symptoms [Recovering/Resolving]
  - Depressed level of consciousness [Recovering/Resolving]
  - Abulia [Recovering/Resolving]
  - Locked-in syndrome [Recovering/Resolving]
  - Aphasia [Recovering/Resolving]
  - Hypokinesia [Recovering/Resolving]
  - Loss of personal independence in daily activities [Recovering/Resolving]
  - Disturbance in attention [Recovering/Resolving]
  - Drug abuse [Unknown]

NARRATIVE: CASE EVENT DATE: 20140101
